FAERS Safety Report 4848668-X (Version None)
Quarter: 2005Q4

REPORT INFORMATION
  Report Type: 
  Country: None (occurrence: None)
  Receive Date: 20051206
  Receipt Date: 20051128
  Transmission Date: 20060501
  Serious: Yes (Hospitalization)
  Sender: FDA-Public Use
  Company Number: GXKR2005GB01618

PATIENT
  Age: 70 Year
  Sex: Male
  Weight: 87 kg

DRUGS (8)
  1. ATENOLOL [Suspect]
     Indication: HYPERTENSION
     Dosage: 50 MG, ORAL; SEE IMAGE
     Route: 048
     Dates: start: 19990903, end: 20020320
  2. ATENOLOL [Suspect]
     Indication: HYPERTENSION
     Dosage: 50 MG, ORAL; SEE IMAGE
     Route: 048
     Dates: start: 20020320, end: 20021010
  3. ATENOLOL [Suspect]
     Indication: HYPERTENSION
     Dosage: 50 MG, ORAL; SEE IMAGE
     Route: 048
     Dates: start: 20021010, end: 20021028
  4. BENDROFLUAZIDE(BENDROFLUMETHIAZIDE) [Suspect]
     Indication: HYPERTENSION
     Dosage: 1.25 MG, ORAL
     Route: 048
     Dates: start: 20020402, end: 20021010
  5. BENDROFLUAZIDE(BENDROFLUMETHIAZIDE) [Suspect]
     Indication: HYPERTENSION
     Dosage: 1.25 MG, ORAL
     Route: 048
     Dates: start: 20031113, end: 20050315
  6. DILTIAZEM HYDROCHLORIDE [Suspect]
  7. MOXONIDINE (MOXONIDINE) [Concomitant]
  8. PARACETAMOL (PARACETAMOL) [Concomitant]

REACTIONS (2)
  - BRADYCARDIA [None]
  - CIRCULATORY COLLAPSE [None]
